FAERS Safety Report 12491433 (Version 1)
Quarter: 2016Q2

REPORT INFORMATION
  Report Type: Report from Study
  Country: BE (occurrence: BE)
  Receive Date: 20160623
  Receipt Date: 20160623
  Transmission Date: 20160815
  Serious: Yes (Other)
  Sender: FDA-Public Use
  Company Number: BE-ROCHE-1776262

PATIENT

DRUGS (2)
  1. BEVACIZUMAB [Suspect]
     Active Substance: BEVACIZUMAB
     Indication: GLIOBLASTOMA
     Route: 065
  2. LOMUSTINE. [Suspect]
     Active Substance: LOMUSTINE
     Indication: GLIOBLASTOMA
     Route: 048

REACTIONS (11)
  - Blood bilirubin increased [Unknown]
  - Lymphocyte count decreased [Unknown]
  - Hyperglycaemia [Unknown]
  - Diarrhoea [Unknown]
  - Hypertension [Unknown]
  - Fatigue [Unknown]
  - Neutrophil count decreased [Unknown]
  - Embolism [Unknown]
  - Hyponatraemia [Unknown]
  - Skin infection [Unknown]
  - White blood cell count decreased [Unknown]
